FAERS Safety Report 15470765 (Version 1)
Quarter: 2018Q4

REPORT INFORMATION
  Report Type: Spontaneous
  Country: ES (occurrence: ES)
  Receive Date: 20181005
  Receipt Date: 20181005
  Transmission Date: 20190205
  Serious: Yes (Other)
  Sender: FDA-Public Use
  Company Number: ES-OTSUKA-2018_032416

PATIENT
  Age: 43 Year
  Sex: Male
  Weight: 89 kg

DRUGS (1)
  1. ABILIFY [Suspect]
     Active Substance: ARIPIPRAZOLE
     Indication: BIPOLAR DISORDER
     Dosage: 5 MG, QD
     Route: 048
     Dates: start: 20080304

REACTIONS (6)
  - Compulsive shopping [Recovered/Resolved with Sequelae]
  - Obsessive-compulsive disorder [Recovered/Resolved with Sequelae]
  - Underdose [Unknown]
  - Compulsive sexual behaviour [Recovered/Resolved with Sequelae]
  - Gambling disorder [Recovered/Resolved with Sequelae]
  - Binge eating [Recovered/Resolved with Sequelae]

NARRATIVE: CASE EVENT DATE: 20080304
